FAERS Safety Report 4549242-5 (Version None)
Quarter: 2005Q1

REPORT INFORMATION
  Report Type: 
  Country: None (occurrence: None)
  Receive Date: 20041230
  Receipt Date: 20040525
  Transmission Date: 20050727
  Serious: Yes (Hospitalization, Other)
  Sender: FDA-Public Use
  Company Number: 04-05-0759

PATIENT
  Age: 15 Year
  Sex: Female

DRUGS (1)
  1. CLOZAPINE [Suspect]
     Dosage: 150-300MG QD ORAL
     Route: 048
     Dates: start: 20030501, end: 20040501

REACTIONS (3)
  - AGRANULOCYTOSIS [None]
  - PYREXIA [None]
  - URINARY TRACT INFECTION [None]
